FAERS Safety Report 12715937 (Version 1)
Quarter: 2016Q3

REPORT INFORMATION
  Report Type: Spontaneous
  Country: US (occurrence: US)
  Receive Date: 20160906
  Receipt Date: 20160906
  Transmission Date: 20161109
  Serious: Yes (Other)
  Sender: FDA-Public Use
  Company Number: US-SA-2016SA161866

PATIENT
  Age: 51 Year
  Sex: Female
  Weight: 104.32 kg

DRUGS (17)
  1. NORMAL SALINE [Concomitant]
     Active Substance: SODIUM CHLORIDE
     Dosage: AS DIRECTED
     Route: 042
     Dates: start: 20160202
  2. LISINOPRIL. [Concomitant]
     Active Substance: LISINOPRIL
     Route: 048
     Dates: start: 20110526
  3. FABRAZYME [Suspect]
     Active Substance: AGALSIDASE BETA
     Indication: LIPIDOSIS
     Dosage: EVERY 10 DAYS
     Route: 042
  4. HEPARIN [Concomitant]
     Active Substance: HEPARIN SODIUM
     Indication: FLUSHING
     Dosage: AS DIRECTED
     Route: 042
     Dates: start: 20160202
  5. FABRAZYME [Suspect]
     Active Substance: AGALSIDASE BETA
     Indication: FABRY^S DISEASE
     Dosage: EVERY 10 DAYS
     Route: 042
  6. EPIPEN [Concomitant]
     Active Substance: EPINEPHRINE
     Indication: ANAPHYLACTIC REACTION
     Route: 030
     Dates: start: 20160202
  7. LORATADINE. [Concomitant]
     Active Substance: LORATADINE
     Route: 048
     Dates: start: 20140912
  8. CYANOCOBALAMIN. [Concomitant]
     Active Substance: CYANOCOBALAMIN
     Dosage: AS DIRECTED DOSE:1000 MICROGRAM(S)/MILLILITRE
     Dates: start: 20121011
  9. NORTRIPTYLINE [Concomitant]
     Active Substance: NORTRIPTYLINE
     Route: 048
     Dates: start: 20150805
  10. PROMETHAZINE [Concomitant]
     Active Substance: PROMETHAZINE\PROMETHAZINE HYDROCHLORIDE
     Dosage: EVERY 8 HOURS AS NEEDED
     Dates: start: 20140722
  11. FABRAZYME [Suspect]
     Active Substance: AGALSIDASE BETA
     Indication: LIPIDOSIS
     Dosage: EVERY 10 DAYS
     Route: 042
  12. DIPHENHYDRAMINE. [Concomitant]
     Active Substance: DIPHENHYDRAMINE
     Indication: PREMEDICATION
     Dosage: DOSE:50 MILLIGRAM(S)/MILLILITRE
     Route: 042
     Dates: start: 20160202
  13. FABRAZYME [Suspect]
     Active Substance: AGALSIDASE BETA
     Indication: FABRY^S DISEASE
     Dosage: EVERY 10 DAYS
     Route: 042
  14. TESSALON [Concomitant]
     Active Substance: BENZONATATE
     Dosage: AS DIRECTED
     Route: 048
     Dates: start: 20160120
  15. ZITHROMAX [Concomitant]
     Active Substance: AZITHROMYCIN DIHYDRATE
     Dosage: AS DIRECTED
     Dates: start: 20160120
  16. FOLIC ACID. [Concomitant]
     Active Substance: FOLIC ACID
     Route: 048
     Dates: start: 20121011
  17. NEXIUM [Concomitant]
     Active Substance: ESOMEPRAZOLE MAGNESIUM
     Route: 048
     Dates: start: 20110526

REACTIONS (2)
  - Musculoskeletal pain [Unknown]
  - Thrombosis [Unknown]

NARRATIVE: CASE EVENT DATE: 2016
